FAERS Safety Report 8414974-5 (Version None)
Quarter: 2012Q2

REPORT INFORMATION
  Report Type: 
  Country: None (occurrence: None)
  Receive Date: 20120530
  Receipt Date: 20120518
  Transmission Date: 20120825
  Serious: Yes (Other)
  Sender: FDA-Public Use
  Company Number: 2012SP026599

PATIENT
  Sex: Female

DRUGS (1)
  1. DULERA [Suspect]
     Indication: PRODUCT USED FOR UNKNOWN INDICATION

REACTIONS (3)
  - VOCAL CORD INFLAMMATION [None]
  - APHONIA [None]
  - IMPAIRED WORK ABILITY [None]
